FAERS Safety Report 8538345-6 (Version None)
Quarter: 2012Q3

REPORT INFORMATION
  Report Type: 
  Country: None (occurrence: None)
  Receive Date: 20120726
  Receipt Date: 20120719
  Transmission Date: 20120928
  Serious: No
  Sender: FDA-Public Use
  Company Number: US-009507513-1207USA007596

PATIENT

DRUGS (1)
  1. IMPLANON [Suspect]
     Indication: CONTRACEPTION
     Dosage: UNK
     Route: 059
     Dates: start: 20100827

REACTIONS (5)
  - BACK PAIN [None]
  - METRORRHAGIA [None]
  - HEADACHE [None]
  - DEPRESSION [None]
  - WEIGHT DECREASED [None]
